FAERS Safety Report 6251731-2 (Version None)
Quarter: 2009Q2

REPORT INFORMATION
  Report Type: 
  Country: None (occurrence: None)
  Receive Date: 20090630
  Receipt Date: 20090622
  Transmission Date: 20091009
  Serious: Yes (Other)
  Sender: FDA-Public Use
  Company Number: US-KINGPHARMUSA00001-K200900736

PATIENT
  Age: 58 Year
  Sex: Female

DRUGS (2)
  1. ALTACE [Suspect]
     Route: 048
  2. PLACEBO [Concomitant]
     Indication: NEUROENDOCRINE TUMOUR
     Dosage: UNK
     Route: 048
     Dates: start: 20080816

REACTIONS (5)
  - ACCIDENT [None]
  - HYPOTENSION [None]
  - LOSS OF CONSCIOUSNESS [None]
  - TRAUMATIC BRAIN INJURY [None]
  - WOUND [None]
